FAERS Safety Report 25862970 (Version 2)
Quarter: 2025Q4

REPORT INFORMATION
  Report Type: Spontaneous
  Country: CN (occurrence: CN)
  Receive Date: 20250930
  Receipt Date: 20251024
  Transmission Date: 20260117
  Serious: Yes (Other)
  Sender: ALKEM
  Company Number: None

PATIENT
  Age: 53 Year
  Sex: Male

DRUGS (6)
  1. MYCOPHENOLATE MOFETIL [Suspect]
     Active Substance: MYCOPHENOLATE MOFETIL
     Indication: Antisynthetase syndrome
     Dosage: 0.5 GRAM, BID (EVERY 12 HOURS)
     Route: 065
  2. MYCOPHENOLATE MOFETIL [Suspect]
     Active Substance: MYCOPHENOLATE MOFETIL
     Indication: Interstitial lung disease
  3. PIRFENIDONE [Suspect]
     Active Substance: PIRFENIDONE
     Indication: Antisynthetase syndrome
     Dosage: 400 MILLIGRAM, TID (EVERY 8 HOURS)
     Route: 065
  4. PIRFENIDONE [Suspect]
     Active Substance: PIRFENIDONE
     Indication: Interstitial lung disease
  5. PREDNISOLONE [Suspect]
     Active Substance: PREDNISOLONE
     Indication: Antisynthetase syndrome
     Dosage: 0.5 MILLIGRAM/KILOGRAM, QD
     Route: 065
  6. PREDNISOLONE [Suspect]
     Active Substance: PREDNISOLONE
     Indication: Interstitial lung disease
     Dosage: 10 MILLIGRAM, QD
     Route: 065

REACTIONS (7)
  - Idiopathic interstitial pneumonia [Recovered/Resolved]
  - Organising pneumonia [Recovered/Resolved]
  - Interstitial lung disease [Recovering/Resolving]
  - Whipple^s disease [Recovered/Resolved]
  - Condition aggravated [Recovering/Resolving]
  - Actinomycotic pulmonary infection [Recovered/Resolved]
  - Neisseria infection [Recovered/Resolved]

NARRATIVE: CASE EVENT DATE: 20220101
